FAERS Safety Report 7804408-3 (Version None)
Quarter: 2011Q4

REPORT INFORMATION
  Report Type: 
  Country: None (occurrence: None)
  Receive Date: 20111010
  Receipt Date: 20110926
  Transmission Date: 20120403
  Serious: Yes (Hospitalization, Other)
  Sender: FDA-Public Use
  Company Number: US-BAYER-2011-027754

PATIENT
  Age: 28 Year
  Sex: Female
  Weight: 84 kg

DRUGS (5)
  1. YAZ [Suspect]
     Indication: POLYCYSTIC OVARIES
  2. MIRAPEX [Concomitant]
     Indication: RESTLESS LEGS SYNDROME
     Dosage: UNK
     Dates: start: 20080101
  3. METRONIDAZOLE [Concomitant]
     Dosage: 500 MG, UNK
  4. YAZ [Suspect]
     Indication: MENSTRUAL CYCLE MANAGEMENT
     Dosage: UNK
     Dates: start: 20100120, end: 20100330
  5. YAZ [Suspect]
     Indication: PREMENSTRUAL SYNDROME

REACTIONS (9)
  - PULMONARY EMBOLISM [None]
  - PAIN [None]
  - BACK PAIN [None]
  - PLEURISY [None]
  - CHEST PAIN [None]
  - PULMONARY INFARCTION [None]
  - PULMONARY HYPERTENSION [None]
  - DRY EYE [None]
  - COAGULOPATHY [None]
